FAERS Safety Report 6824986-0 (Version None)
Quarter: 2010Q3

REPORT INFORMATION
  Report Type: 
  Country: None (occurrence: None)
  Receive Date: 20100708
  Receipt Date: 20070329
  Transmission Date: 20110219
  Serious: No
  Sender: FDA-Public Use
  Company Number: US-PFIZER INC-2007002109

PATIENT
  Sex: Female
  Weight: 40.82 kg

DRUGS (2)
  1. CHANTIX [Suspect]
     Indication: SMOKING CESSATION THERAPY
     Dates: start: 20061212
  2. FIORINAL [Concomitant]

REACTIONS (3)
  - LETHARGY [None]
  - SOMNOLENCE [None]
  - VISION BLURRED [None]
